FAERS Safety Report 5016081-0 (Version None)
Quarter: 2006Q2

REPORT INFORMATION
  Report Type: 
  Country: None (occurrence: None)
  Receive Date: 20060414
  Receipt Date: 20060301
  Transmission Date: 20061013
  Serious: No
  Sender: FDA-Public Use
  Company Number: 2006SP001048

PATIENT
  Age: 65 Year
  Sex: Female
  Weight: 90.7194 kg

DRUGS (8)
  1. LUNESTA [Suspect]
     Indication: INSOMNIA
     Dosage: 2MG;PRN;ORAL
     Route: 048
     Dates: start: 20051201, end: 20060201
  2. ANTIHISTAMINES [Concomitant]
  3. AMLODIPINE [Concomitant]
  4. SIMVASTATIN [Concomitant]
  5. ESTRACE VAGINAL CREAM [Concomitant]
  6. MOBIC [Concomitant]
  7. MOTRIN [Concomitant]
  8. DETROL [Concomitant]

REACTIONS (1)
  - NIGHTMARE [None]
